FAERS Safety Report 9110203 (Version 4)
Quarter: 2015Q1

REPORT INFORMATION
  Report Type: Report from Study
  Country: US (occurrence: US)
  Receive Date: 20130222
  Receipt Date: 20150323
  Transmission Date: 20150721
  Serious: Yes (Death)
  Sender: FDA-Public Use
  Company Number: US-ROCHE-1193780

PATIENT
  Sex: Female

DRUGS (9)
  1. ZOFRAN [Concomitant]
     Active Substance: ONDANSETRON HYDROCHLORIDE
     Dosage: 10 (UNIT NOT REPORTED)
     Route: 065
  2. ABRAXANE [Concomitant]
     Active Substance: PACLITAXEL
     Route: 042
  3. AVASTIN [Suspect]
     Active Substance: BEVACIZUMAB
     Indication: BREAST CANCER METASTATIC
     Route: 042
  4. AVASTIN [Suspect]
     Active Substance: BEVACIZUMAB
     Indication: BONE CANCER
  5. CATHFLO ACTIVASE [Suspect]
     Active Substance: ALTEPLASE
     Indication: PRODUCT USED FOR UNKNOWN INDICATION
     Route: 050
     Dates: start: 20121017, end: 20121023
  6. XELODA [Suspect]
     Active Substance: CAPECITABINE
     Indication: BRAIN NEOPLASM MALIGNANT
     Dosage: 3 TABLET 2 TIMES PER DAY FOR 14 DAYS, THEN 7 DAYS OFF
     Route: 065
  7. XELODA [Suspect]
     Active Substance: CAPECITABINE
     Indication: BONE CANCER
  8. XELODA [Suspect]
     Active Substance: CAPECITABINE
     Indication: BREAST CANCER METASTATIC
     Dosage: 2 TABLETS TWICE DAILY FOR 14 DAYS, THEN OFF FOR 7 DAYS
     Route: 065
     Dates: start: 20121116
  9. DECADRON [Concomitant]
     Active Substance: DEXAMETHASONE
     Dosage: 10 (UNIT NOT REPORTED)
     Route: 065

REACTIONS (2)
  - Death [Fatal]
  - Medication error [Unknown]
